FAERS Safety Report 23908353 (Version 2)
Quarter: 2024Q2

REPORT INFORMATION
  Report Type: Report from Study
  Country: CA (occurrence: CA)
  Receive Date: 20240528
  Receipt Date: 20240617
  Transmission Date: 20240716
  Serious: Yes (Other)
  Sender: FDA-Public Use
  Company Number: CA-002147023-NVSC2024CA110550

PATIENT
  Age: 51 Year
  Sex: Female

DRUGS (1)
  1. MAYZENT [Suspect]
     Active Substance: SIPONIMOD
     Indication: Secondary progressive multiple sclerosis
     Dosage: 2 MG, QD
     Route: 048
     Dates: start: 20240222

REACTIONS (4)
  - Hemiparesis [Unknown]
  - Fall [Recovered/Resolved]
  - Eye contusion [Unknown]
  - Dysgraphia [Unknown]

NARRATIVE: CASE EVENT DATE: 20240523
